FAERS Safety Report 18416755 (Version 1)
Quarter: 2020Q4

REPORT INFORMATION
  Report Type: Spontaneous
  Country: US (occurrence: US)
  Receive Date: 20201022
  Receipt Date: 20201022
  Transmission Date: 20210114
  Serious: No
  Sender: FDA-Public Use
  Company Number: US-PFIZER INC-2020405091

PATIENT
  Age: 91 Year
  Sex: Male
  Weight: 79.83 kg

DRUGS (3)
  1. MEKTOVI [Suspect]
     Active Substance: BINIMETINIB
     Indication: MALIGNANT MELANOMA STAGE III
     Dosage: 45 MG, 2X/DAY
     Route: 048
     Dates: start: 20200911, end: 20201005
  2. PROCHLORPERAZINE. [Suspect]
     Active Substance: PROCHLORPERAZINE
     Indication: NAUSEA
     Dosage: UNK
  3. MEKTOVI [Suspect]
     Active Substance: BINIMETINIB
     Indication: N-RAS GENE MUTATION

REACTIONS (6)
  - Rash [Recovering/Resolving]
  - Pruritus [Recovered/Resolved]
  - Weight decreased [Unknown]
  - Chapped lips [Recovering/Resolving]
  - Nausea [Recovered/Resolved]
  - Lip haemorrhage [Recovering/Resolving]

NARRATIVE: CASE EVENT DATE: 2020
